FAERS Safety Report 26179994 (Version 1)
Quarter: 2025Q4

REPORT INFORMATION
  Report Type: Spontaneous
  Country: EU (occurrence: EU)
  Receive Date: 20251219
  Receipt Date: 20251219
  Transmission Date: 20260118
  Serious: Yes (Other)
  Sender: Atnahs Healthcare
  Company Number: EU-ATNAHS-2025-PMNV-FR002120

PATIENT

DRUGS (6)
  1. DIAZEPAM [Suspect]
     Active Substance: DIAZEPAM
     Indication: Mental disorder
     Dosage: UNK
     Route: 065
  2. HYDROXYZINE [Suspect]
     Active Substance: HYDROXYZINE HYDROCHLORIDE
     Indication: Mental disorder
     Dosage: UNK
     Route: 065
  3. HYDROXYZINE [Suspect]
     Active Substance: HYDROXYZINE HYDROCHLORIDE
     Indication: Off label use
  4. ALPRAZOLAM [Suspect]
     Active Substance: ALPRAZOLAM
     Indication: Mental disorder
     Dosage: UNK
     Route: 065
  5. LAMOTRIGINE [Suspect]
     Active Substance: LAMOTRIGINE
     Indication: Mental disorder
     Dosage: UNK
     Route: 065
  6. PAROXETINE [Suspect]
     Active Substance: PAROXETINE
     Indication: Mental disorder
     Dosage: UNK
     Route: 065

REACTIONS (2)
  - Toxic epidermal necrolysis [Unknown]
  - Off label use [Unknown]
